FAERS Safety Report 19637527 (Version 1)
Quarter: 2021Q3

REPORT INFORMATION
  Report Type: Spontaneous
  Country: US (occurrence: US)
  Receive Date: 20210730
  Receipt Date: 20210730
  Transmission Date: 20211014
  Serious: No
  Sender: FDA-Public Use
  Company Number: US-PERRIGO-21US006504

PATIENT
  Age: 72 Year
  Sex: Female
  Weight: 52.15 kg

DRUGS (1)
  1. MINOXIDIL. [Suspect]
     Active Substance: MINOXIDIL
     Indication: HYPOTRICHOSIS
     Dosage: SMALL AMOUNT, BID
     Route: 061
     Dates: start: 202004

REACTIONS (3)
  - Therapeutic product effect decreased [Unknown]
  - Product administered at inappropriate site [Not Recovered/Not Resolved]
  - Off label use [Not Recovered/Not Resolved]

NARRATIVE: CASE EVENT DATE: 202004
